FAERS Safety Report 24045632 (Version 1)
Quarter: 2024Q3

REPORT INFORMATION
  Report Type: Spontaneous
  Country: CA (occurrence: CA)
  Receive Date: 20240703
  Receipt Date: 20240703
  Transmission Date: 20241017
  Serious: Yes (Other)
  Sender: B BRAUN
  Company Number: CA-B.Braun Medical Inc.-2158804

PATIENT
  Age: 38 Year
  Sex: Female

DRUGS (6)
  1. THEOPHYLLINE IN DEXTROSE [Suspect]
     Active Substance: DEXTROSE MONOHYDRATE\THEOPHYLLINE\THEOPHYLLINE ANHYDROUS
  2. CODEINE [Suspect]
     Active Substance: CODEINE
  3. PREDNISONE [Concomitant]
     Active Substance: PREDNISONE
  4. OMALIZUMAB [Suspect]
     Active Substance: OMALIZUMAB
  5. MOXIFLOXACIN [Suspect]
     Active Substance: MOXIFLOXACIN
  6. ERYTHROMYCIN ETHYLSUCCINATE [Suspect]
     Active Substance: ERYTHROMYCIN ETHYLSUCCINATE

REACTIONS (10)
  - Allergic respiratory disease [Unknown]
  - Throat clearing [Unknown]
  - Sinusitis [Unknown]
  - Pneumonitis [Unknown]
  - Forced expiratory volume decreased [Unknown]
  - Drug intolerance [Unknown]
  - Drug hypersensitivity [Unknown]
  - Bronchitis [Unknown]
  - Asthma [Unknown]
  - Anaphylactic shock [Unknown]
